FAERS Safety Report 15891191 (Version 1)
Quarter: 2019Q1

REPORT INFORMATION
  Report Type: Spontaneous
  Country: GR (occurrence: GR)
  Receive Date: 20190130
  Receipt Date: 20190130
  Transmission Date: 20190417
  Serious: Yes (Other)
  Sender: FDA-Public Use
  Company Number: GR-MYLANLABS-2019M1007949

PATIENT
  Age: 62 Year
  Sex: Female

DRUGS (2)
  1. ACICLOVIR [Suspect]
     Active Substance: ACYCLOVIR
     Indication: HERPES VIRUS INFECTION
     Dosage: UNK
     Route: 042
  2. TYSABRI [Suspect]
     Active Substance: NATALIZUMAB
     Indication: MULTIPLE SCLEROSIS
     Dosage: UNK
     Route: 065
     Dates: start: 2011

REACTIONS (8)
  - Confusional state [Unknown]
  - Pyrexia [Unknown]
  - Electroencephalogram abnormal [Unknown]
  - Diarrhoea [Unknown]
  - Acute kidney injury [Unknown]
  - Disorientation [Unknown]
  - Herpes simplex test positive [Unknown]
  - Communication disorder [Unknown]
